FAERS Safety Report 23140010 (Version 1)
Quarter: 2023Q4

REPORT INFORMATION
  Report Type: Spontaneous
  Country: HN (occurrence: HN)
  Receive Date: 20231102
  Receipt Date: 20231102
  Transmission Date: 20240110
  Serious: Yes (Other)
  Sender: FDA-Public Use
  Company Number: HN-BAYER-2023A152749

PATIENT
  Age: 75 Year
  Sex: Male

DRUGS (2)
  1. FINERENONE [Suspect]
     Active Substance: FINERENONE
     Dosage: 20 MG
  2. AMLODIPINE [Concomitant]
     Active Substance: AMLODIPINE BESYLATE

REACTIONS (7)
  - Acute kidney injury [None]
  - Blood creatinine increased [None]
  - Escherichia urinary tract infection [None]
  - Antimicrobial susceptibility test resistant [None]
  - Urine albumin/creatinine ratio increased [None]
  - Rhabdomyolysis [None]
  - Adverse event [None]
